FAERS Safety Report 21751895 (Version 1)
Quarter: 2022Q4

REPORT INFORMATION
  Report Type: Spontaneous
  Country: US (occurrence: US)
  Receive Date: 20221220
  Receipt Date: 20221220
  Transmission Date: 20230113
  Serious: No
  Sender: FDA-Public Use
  Company Number: US-SA-SAC20221216001384

PATIENT
  Sex: Female

DRUGS (1)
  1. DUPIXENT [Suspect]
     Active Substance: DUPILUMAB
     Dosage: 300 MG, OTHER
     Route: 058

REACTIONS (6)
  - Abdominal pain upper [Unknown]
  - Diarrhoea [Recovered/Resolved]
  - Candida infection [Unknown]
  - Lacrimation increased [Unknown]
  - Arthralgia [Unknown]
  - Eye pruritus [Unknown]
